FAERS Safety Report 16759586 (Version 2)
Quarter: 2019Q3

REPORT INFORMATION
  Report Type: Spontaneous
  Country: US (occurrence: US)
  Receive Date: 20190830
  Receipt Date: 20190830
  Transmission Date: 20191005
  Serious: No
  Sender: FDA-Public Use
  Company Number: US-RECKITT BENCKISER HEALTHCARE INT LIMITED-RB-84929-2019

PATIENT
  Age: 34 Year
  Sex: Female

DRUGS (2)
  1. MUCINEX D MAXIMUM STRENGTH [Suspect]
     Active Substance: GUAIFENESIN\PSEUDOEPHEDRINE HYDROCHLORIDE
     Indication: RESPIRATORY TRACT CONGESTION
     Dosage: 1200 MILLIGRAM, BID
     Route: 065
     Dates: start: 201904
  2. MUCINEX D MAXIMUM STRENGTH [Suspect]
     Active Substance: GUAIFENESIN\PSEUDOEPHEDRINE HYDROCHLORIDE
     Indication: SECRETION DISCHARGE

REACTIONS (3)
  - Condition aggravated [Not Recovered/Not Resolved]
  - Malaise [Not Recovered/Not Resolved]
  - Dysphonia [Not Recovered/Not Resolved]
